FAERS Safety Report 5042765-4 (Version None)
Quarter: 2006Q3

REPORT INFORMATION
  Report Type: 
  Country: None (occurrence: None)
  Receive Date: 20060705
  Receipt Date: 20060627
  Transmission Date: 20061208
  Serious: Yes (Hospitalization)
  Sender: FDA-Public Use
  Company Number: US-KINGPHARMUSA00001-K200600835

PATIENT
  Sex: Male

DRUGS (1)
  1. EPIPEN [Suspect]
     Indication: DRUG ADMINISTRATION ERROR
     Dates: start: 20060607, end: 20060607

REACTIONS (1)
  - ACCIDENTAL NEEDLE STICK [None]
